FAERS Safety Report 13792343 (Version 3)
Quarter: 2018Q1

REPORT INFORMATION
  Report Type: Spontaneous
  Country: JP (occurrence: JP)
  Receive Date: 20170726
  Receipt Date: 20180109
  Transmission Date: 20180508
  Serious: Yes (Hospitalization, Other)
  Sender: FDA-Public Use
  Company Number: JP-APOTEX-2017AP015980

PATIENT
  Age: 24 Year
  Sex: Female

DRUGS (8)
  1. PAXIL CR [Suspect]
     Active Substance: PAROXETINE HYDROCHLORIDE
     Dosage: 37.5 MG, 1D
     Route: 048
     Dates: start: 20160629
  2. ENOXAPARIN SODIUM. [Concomitant]
     Active Substance: ENOXAPARIN SODIUM
     Indication: PRODUCT USED FOR UNKNOWN INDICATION
  3. PAXIL CR [Suspect]
     Active Substance: PAROXETINE HYDROCHLORIDE
     Indication: OBSESSIVE-COMPULSIVE DISORDER
     Dosage: 50 MG, QD
     Route: 048
  4. FLUVOXAMINE MALEATE. [Concomitant]
     Active Substance: FLUVOXAMINE MALEATE
     Indication: PRODUCT USED FOR UNKNOWN INDICATION
  5. QUAZEPAM. [Concomitant]
     Active Substance: QUAZEPAM
     Indication: PRODUCT USED FOR UNKNOWN INDICATION
  6. TRANDATE [Concomitant]
     Active Substance: LABETALOL HYDROCHLORIDE
     Indication: BLOOD PRESSURE INCREASED
     Dosage: 50 MG, PRN
     Route: 065
     Dates: start: 20161014, end: 20161015
  7. QUETIAPINE. [Concomitant]
     Active Substance: QUETIAPINE
     Dosage: 25 MG, 1D
     Route: 065
     Dates: start: 20160713
  8. QUETIAPINE. [Concomitant]
     Active Substance: QUETIAPINE
     Dosage: 50 MG, 1D
     Route: 065

REACTIONS (17)
  - Gestational hypertension [Unknown]
  - Cardiac failure [Recovering/Resolving]
  - Peripartum cardiomyopathy [Recovering/Resolving]
  - Head discomfort [Unknown]
  - Dyspnoea [Recovered/Resolved]
  - Pleural effusion [Recovered/Resolved]
  - Live birth [Unknown]
  - Orthopnoea [Unknown]
  - Headache [Unknown]
  - Ejection fraction decreased [Not Recovered/Not Resolved]
  - Cough [Unknown]
  - Pulmonary congestion [Recovered/Resolved]
  - Product use in unapproved indication [Unknown]
  - Anaemia [Unknown]
  - Wheezing [Unknown]
  - Exposure during pregnancy [Unknown]
  - Asthma [Recovered/Resolved]

NARRATIVE: CASE EVENT DATE: 20160629
